FAERS Safety Report 16553775 (Version 2)
Quarter: 2019Q3

REPORT INFORMATION
  Report Type: Spontaneous
  Country: JP (occurrence: JP)
  Receive Date: 20190710
  Receipt Date: 20190731
  Transmission Date: 20191004
  Serious: Yes (Other)
  Sender: FDA-Public Use
  Company Number: JP-GUERBET-JP-20190094

PATIENT
  Age: 47 Year
  Sex: Male

DRUGS (1)
  1. OPTIRAY 240 [Suspect]
     Active Substance: IOVERSOL
     Indication: SCAN WITH CONTRAST
     Route: 013

REACTIONS (1)
  - White matter lesion [Recovered/Resolved]
